FAERS Safety Report 6248653-X (Version None)
Quarter: 2009Q2

REPORT INFORMATION
  Report Type: 
  Country: None (occurrence: None)
  Receive Date: 20090625
  Receipt Date: 20081024
  Transmission Date: 20091009
  Serious: Yes (Other)
  Sender: FDA-Public Use
  Company Number: FPI-08-TEV-0272

PATIENT
  Sex: Male

DRUGS (3)
  1. TEV-TROPIN [Suspect]
     Dosage: 5MG IN ? NS, SUBCUT INJ
     Route: 058
     Dates: end: 20080415
  2. TEV-TROPIN [Suspect]
     Dosage: 5MG IN ? NS, SUBCUT INJ
     Route: 058
     Dates: start: 20080815
  3. STRATTERA [Concomitant]

REACTIONS (1)
  - OCULAR NEOPLASM [None]
